FAERS Safety Report 11163409 (Version 1)
Quarter: 2015Q2

REPORT INFORMATION
  Report Type: Spontaneous
  Country: US (occurrence: None)
  Receive Date: 20150603
  Receipt Date: 20150603
  Transmission Date: 20150821
  Serious: Yes (Hospitalization)
  Sender: FDA-Public Use
  Company Number: None

PATIENT
  Age: 54 Year
  Sex: Female
  Weight: 130.64 kg

DRUGS (20)
  1. SOVALDI [Suspect]
     Active Substance: SOFOSBUVIR
     Indication: HEPATITIS C
     Route: 048
     Dates: start: 20150207, end: 20150501
  2. SPIRONOLACTONE. [Concomitant]
     Active Substance: SPIRONOLACTONE
  3. VENLAFAXINE [Concomitant]
     Active Substance: VENLAFAXINE HYDROCHLORIDE
  4. LACTULOSE. [Concomitant]
     Active Substance: LACTULOSE
  5. BISACODYL. [Concomitant]
     Active Substance: BISACODYL
  6. KEPPRA [Concomitant]
     Active Substance: LEVETIRACETAM
  7. TYLENOL [Concomitant]
     Active Substance: ACETAMINOPHEN
  8. ALPRAZOLAM. [Concomitant]
     Active Substance: ALPRAZOLAM
  9. SUMATRIPTAN. [Concomitant]
     Active Substance: SUMATRIPTAN
  10. FUROSEMIDE. [Concomitant]
     Active Substance: FUROSEMIDE
  11. FAMOTIDINE. [Concomitant]
     Active Substance: FAMOTIDINE
  12. RIBAVIRIN. [Suspect]
     Active Substance: RIBAVIRIN
     Indication: HEPATITIS C
     Route: 048
     Dates: start: 20150207, end: 20150501
  13. LEVOTHYROXINE [Concomitant]
     Active Substance: LEVOTHYROXINE
  14. LAMOTRIGINE. [Concomitant]
     Active Substance: LAMOTRIGINE
  15. MAGNESIUM HYDROXIDE. [Concomitant]
     Active Substance: MAGNESIUM HYDROXIDE
  16. GABAPENTIN. [Concomitant]
     Active Substance: GABAPENTIN
  17. QUETIAPINE [Concomitant]
     Active Substance: QUETIAPINE
  18. POTASSIUM CHLORIDE. [Concomitant]
     Active Substance: POTASSIUM CHLORIDE
  19. XIFAXAN [Concomitant]
     Active Substance: RIFAXIMIN
  20. PRAVASTATIN [Concomitant]
     Active Substance: PRAVASTATIN\PRAVASTATIN SODIUM

REACTIONS (3)
  - Psychotic disorder [None]
  - Mania [None]
  - Anaemia [None]

NARRATIVE: CASE EVENT DATE: 20150302
